FAERS Safety Report 12581551 (Version 1)
Quarter: 2016Q3

REPORT INFORMATION
  Report Type: Report from Study
  Country: US (occurrence: US)
  Receive Date: 20160721
  Receipt Date: 20160721
  Transmission Date: 20161109
  Serious: No
  Sender: FDA-Public Use
  Company Number: PHEH2016US018127

PATIENT
  Age: 75 Year
  Sex: Male
  Weight: 71.2 kg

DRUGS (1)
  1. GLEEVEC [Suspect]
     Active Substance: IMATINIB MESYLATE
     Indication: CHRONIC MYELOID LEUKAEMIA
     Dosage: 400 MG, QD
     Route: 048
     Dates: start: 20140709

REACTIONS (2)
  - Erythema [Not Recovered/Not Resolved]
  - Skin haemorrhage [Unknown]

NARRATIVE: CASE EVENT DATE: 20160718
